FAERS Safety Report 11393828 (Version 3)
Quarter: 2017Q2

REPORT INFORMATION
  Report Type: Report from Study
  Country: US (occurrence: US)
  Receive Date: 20150819
  Receipt Date: 20170412
  Transmission Date: 20170829
  Serious: No
  Sender: FDA-Public Use
  Company Number: US-B.I. PHARMACEUTICALS,INC./RIDGEFIELD-2015-BI-42835BP

PATIENT
  Age: 81 Year
  Sex: Female
  Weight: 81 kg

DRUGS (2)
  1. OFEV [Suspect]
     Active Substance: NINTEDANIB
     Route: 048
     Dates: start: 20161206
  2. OFEV [Suspect]
     Active Substance: NINTEDANIB
     Indication: IDIOPATHIC PULMONARY FIBROSIS
     Route: 048
     Dates: start: 20150715

REACTIONS (10)
  - Muscle spasms [Unknown]
  - Weight increased [Unknown]
  - Limb injury [Unknown]
  - Insomnia [Unknown]
  - Productive cough [Unknown]
  - Fall [Unknown]
  - Cough [Unknown]
  - Dyspnoea [Unknown]
  - Fall [Recovered/Resolved]
  - Diarrhoea [Unknown]

NARRATIVE: CASE EVENT DATE: 20150805
